FAERS Safety Report 9735453 (Version 1)
Quarter: 2013Q4

REPORT INFORMATION
  Report Type: Spontaneous
  Country: US (occurrence: US)
  Receive Date: 20131206
  Receipt Date: 20131206
  Transmission Date: 20140711
  Serious: No
  Sender: FDA-Public Use
  Company Number: US-GILEAD-2009-0022914

PATIENT
  Sex: Female
  Weight: 60.78 kg

DRUGS (16)
  1. LETAIRIS [Suspect]
     Indication: PULMONARY ARTERIAL HYPERTENSION
     Route: 048
     Dates: start: 20090202
  2. OXYGEN [Concomitant]
  3. PREVACID [Concomitant]
  4. ACETAMINOPHEN [Concomitant]
  5. DIOVAN HCT [Concomitant]
  6. ASPIRIN [Concomitant]
  7. NIACIN [Concomitant]
  8. PULMICORT [Concomitant]
  9. CAL MAG ZINC [Concomitant]
  10. SPIRIVA [Concomitant]
  11. MULTIVITAMINS [Concomitant]
  12. OMEGA-3 [Concomitant]
  13. PERFOROMIST [Concomitant]
  14. RANITIDINE [Concomitant]
  15. CO-Q10 [Concomitant]
  16. VITAMIN C [Concomitant]

REACTIONS (2)
  - Contusion [Unknown]
  - Muscle spasms [Unknown]
